FAERS Safety Report 8708420 (Version 9)
Quarter: 2013Q2

REPORT INFORMATION
  Report Type: Report from Study
  Country: DK (occurrence: FR)
  Receive Date: 20120806
  Receipt Date: 20130510
  Transmission Date: 20140414
  Serious: Yes (Death, Life-Threatening, Hospitalization, Other)
  Sender: FDA-Public Use
  Company Number: DK-PFIZER INC-2012188869

PATIENT
  Age: 40 Year
  Sex: Female
  Weight: 68 kg

DRUGS (1)
  1. CRIZOTINIB [Suspect]
     Indication: LUNG CANCER METASTATIC
     Dosage: 200 MG, 2X/DAY
     Route: 048
     Dates: start: 20120620, end: 20120727

REACTIONS (7)
  - Hepatitis fulminant [Fatal]
  - Hepatic encephalopathy [Fatal]
  - Respiratory failure [Fatal]
  - Constipation [Unknown]
  - Nausea [Unknown]
  - Vomiting [Unknown]
  - Ocular icterus [Unknown]
